FAERS Safety Report 16290094 (Version 5)
Quarter: 2019Q3

REPORT INFORMATION
  Report Type: Spontaneous
  Country: GB (occurrence: GB)
  Receive Date: 20190509
  Receipt Date: 20190923
  Transmission Date: 20191004
  Serious: Yes (Other)
  Sender: FDA-Public Use
  Company Number: GB-JNJFOC-20190505807

PATIENT
  Age: 6 Decade
  Sex: Female

DRUGS (1)
  1. SIMPONI [Suspect]
     Active Substance: GOLIMUMAB
     Indication: ANKYLOSING SPONDYLITIS
     Route: 058

REACTIONS (4)
  - Lower respiratory tract infection [Not Recovered/Not Resolved]
  - Skin discolouration [Not Recovered/Not Resolved]
  - Movement disorder [Not Recovered/Not Resolved]
  - Diabetes mellitus [Unknown]

NARRATIVE: CASE EVENT DATE: 2019
